FAERS Safety Report 7060602-3 (Version None)
Quarter: 2010Q4

REPORT INFORMATION
  Report Type: 
  Country: None (occurrence: None)
  Receive Date: 20101025
  Receipt Date: 20101018
  Transmission Date: 20110411
  Serious: Yes (Other)
  Sender: FDA-Public Use
  Company Number: US-US-EMD SERONO, INC.-7015654

PATIENT
  Sex: Male

DRUGS (8)
  1. REBIF [Suspect]
     Indication: MULTIPLE SCLEROSIS
     Route: 058
     Dates: start: 20100816, end: 20100827
  2. REBIF [Suspect]
     Route: 058
     Dates: start: 20100827, end: 20100101
  3. REBIF [Suspect]
     Route: 058
     Dates: start: 20100101, end: 20100101
  4. REBIF [Suspect]
     Route: 058
     Dates: start: 20100101, end: 20100101
  5. REBIF [Suspect]
     Route: 058
     Dates: start: 20101008, end: 20100101
  6. REBIF [Suspect]
     Route: 058
     Dates: start: 20100101
  7. ACETAMINOPHEN [Concomitant]
     Indication: PREMEDICATION
  8. NEURONTIN [Concomitant]
     Indication: NEURALGIA

REACTIONS (4)
  - ANXIETY [None]
  - CARDIAC FLUTTER [None]
  - HEART RATE IRREGULAR [None]
  - INFLUENZA LIKE ILLNESS [None]
